FAERS Safety Report 5530174-0 (Version None)
Quarter: 2007Q4

REPORT INFORMATION
  Report Type: 
  Country: None (occurrence: None)
  Receive Date: 20071130
  Receipt Date: 20071116
  Transmission Date: 20080405
  Serious: Yes (Other)
  Sender: FDA-Public Use
  Company Number: DE-BAYER-200717010GPV

PATIENT
  Age: 78 Year
  Sex: Male
  Weight: 75 kg

DRUGS (3)
  1. CIPROFLOXACIN [Suspect]
     Indication: SEPSIS
     Dosage: TOTAL DAILY DOSE: 1500 MG  UNIT DOSE: 500 MG
     Route: 065
     Dates: start: 20070607, end: 20070612
  2. CLONT (METRONIDAZOL) [Concomitant]
     Indication: DRUG USE FOR UNKNOWN INDICATION
     Route: 065
     Dates: start: 20070607, end: 20070612
  3. ALLOPURINOL [Concomitant]
     Indication: GOUT
     Route: 065

REACTIONS (4)
  - EXOSTOSIS [None]
  - GAIT DISTURBANCE [None]
  - PAIN IN EXTREMITY [None]
  - TENDON RUPTURE [None]
